FAERS Safety Report 4870078-X (Version None)
Quarter: 2005Q4

REPORT INFORMATION
  Report Type: 
  Country: None (occurrence: None)
  Receive Date: 20051229
  Receipt Date: 20051229
  Transmission Date: 20060501
  Serious: Yes (Death)
  Sender: FDA-Public Use
  Company Number: None

PATIENT
  Sex: Female
  Weight: 11.7 kg

DRUGS (5)
  1. CARBOPLATIN [Suspect]
     Indication: NEUROBLASTOMA
     Dosage: SEE IMAGE
     Dates: start: 20051207, end: 20051210
  2. CARBOPLATIN [Suspect]
     Indication: NEUROBLASTOMA
     Dosage: SEE IMAGE
     Dates: start: 20051207
  3. ETOPOSIDE [Suspect]
     Dosage: SEE IMAGE
     Dates: start: 20051207, end: 20051210
  4. NEUPOGEN [Suspect]
     Dosage: SEE IMAGE
     Dates: start: 20051214, end: 20051220
  5. MELPHALAN [Suspect]
     Dosage: SEE IMAGE
     Dates: start: 20051207, end: 20051209

REACTIONS (12)
  - ABDOMINAL DISTENSION [None]
  - ANAEMIA [None]
  - BLOOD PRESSURE FLUCTUATION [None]
  - CARDIO-RESPIRATORY ARREST [None]
  - COMPLICATIONS OF BONE MARROW TRANSPLANT [None]
  - GASTROINTESTINAL DISORDER [None]
  - HYPONATRAEMIA [None]
  - NEUTROPENIA [None]
  - POOR PERIPHERAL CIRCULATION [None]
  - SEPTIC SHOCK [None]
  - THROMBOCYTOPENIA [None]
  - URINE OUTPUT DECREASED [None]
